FAERS Safety Report 5440794-X (Version None)
Quarter: 2007Q3

REPORT INFORMATION
  Report Type: 
  Country: None (occurrence: None)
  Receive Date: 20070731
  Receipt Date: 20070523
  Transmission Date: 20080115
  Serious: No
  Sender: FDA-Public Use
  Company Number: US200705006167

PATIENT
  Age: 71 Year
  Sex: Male

DRUGS (5)
  1. BYETTA [Suspect]
     Indication: TYPE 2 DIABETES MELLITUS
     Dosage: 5 UG, SUBCUTANEOUS; 10 UG, 2/D,  SUBCUTANEOUS; 10 UG, 1/D,  SUBCUTANEOUS
     Route: 058
     Dates: start: 20070401, end: 20070501
  2. BYETTA [Suspect]
     Indication: TYPE 2 DIABETES MELLITUS
     Dosage: 5 UG, SUBCUTANEOUS; 10 UG, 2/D,  SUBCUTANEOUS; 10 UG, 1/D,  SUBCUTANEOUS
     Route: 058
     Dates: start: 20070501, end: 20070501
  3. BYETTA [Suspect]
     Indication: TYPE 2 DIABETES MELLITUS
     Dosage: 5 UG, SUBCUTANEOUS; 10 UG, 2/D,  SUBCUTANEOUS; 10 UG, 1/D,  SUBCUTANEOUS
     Route: 058
     Dates: start: 20070522
  4. EXENATIDE PEN (EXENATIDE PEN) [Concomitant]
  5. GLYBURIDE AND METFORMIN HCL [Concomitant]

REACTIONS (4)
  - ABDOMINAL DISTENSION [None]
  - BLOOD GLUCOSE DECREASED [None]
  - EARLY SATIETY [None]
  - FATIGUE [None]
